FAERS Safety Report 5154339-5 (Version None)
Quarter: 2006Q4

REPORT INFORMATION
  Report Type: 
  Country: None (occurrence: None)
  Receive Date: 20061114
  Receipt Date: 20061102
  Transmission Date: 20070319
  Serious: Yes (Death)
  Sender: FDA-Public Use
  Company Number: 2006136308

PATIENT
  Age: 66 Year
  Sex: Male

DRUGS (5)
  1. LIPITOR [Suspect]
     Indication: HYPERLIPIDAEMIA
     Dosage: 10 MG, ORAL
     Route: 048
     Dates: start: 20060927, end: 20061020
  2. FAMOTIDINE [Suspect]
     Dosage: 40 MG, ORAL
     Route: 048
     Dates: start: 20060927, end: 20061020
  3. ASPIRIN [Suspect]
     Dosage: 200 MG, ORAL
     Route: 048
     Dates: start: 20060927, end: 20061020
  4. ENALAPRIL MALEATE [Suspect]
     Dosage: 2.5 MG, ORAL
     Route: 048
     Dates: start: 20060927, end: 20061020
  5. PLAVIX [Suspect]
     Dosage: 75 MG, ORAL
     Route: 048
     Dates: start: 20060927, end: 20061020

REACTIONS (2)
  - CARDIAC DISORDER [None]
  - OCULOMUCOCUTANEOUS SYNDROME [None]
